FAERS Safety Report 20398066 (Version 1)
Quarter: 2022Q1

REPORT INFORMATION
  Report Type: Other
  Country: US (occurrence: None)
  Receive Date: 20220131
  Receipt Date: 20220131
  Transmission Date: 20220423
  Serious: Yes (Other)
  Sender: FDA-Public Use
  Company Number: US-ROCHE-3004961

PATIENT
  Sex: Female
  Weight: 113.95 kg

DRUGS (2)
  1. OCREVUS [Suspect]
     Active Substance: OCRELIZUMAB
     Indication: Relapsing-remitting multiple sclerosis
     Dosage: MAINTENANCE DOSE; 600 MG IV OVER AT LEAST 3.5 HOURS EVERY 6 MONTHS
     Route: 042
     Dates: start: 202010
  2. CHOLECALCIFEROL [Concomitant]
     Active Substance: CHOLECALCIFEROL

REACTIONS (10)
  - Hepatitis B virus test positive [Unknown]
  - Multiple sclerosis [Unknown]
  - Restless legs syndrome [Unknown]
  - Abdominal pain upper [Unknown]
  - Diarrhoea [Unknown]
  - Gait disturbance [Unknown]
  - Paraesthesia [Unknown]
  - Tandem gait test abnormal [Unknown]
  - Hypoaesthesia [Unknown]
  - Drug ineffective [Unknown]
